FAERS Safety Report 13669258 (Version 2)
Quarter: 2017Q3

REPORT INFORMATION
  Report Type: Spontaneous
  Country: JP (occurrence: JP)
  Receive Date: 20170620
  Receipt Date: 20170817
  Transmission Date: 20171127
  Serious: Yes (Hospitalization, Other)
  Sender: FDA-Public Use
  Company Number: JP-OTSUKA-2017_013044

PATIENT
  Age: 82 Year
  Sex: Male

DRUGS (6)
  1. RIVAROXABAN [Concomitant]
     Active Substance: RIVAROXABAN
     Indication: ATRIAL FIBRILLATION
     Dosage: UNK
     Route: 048
  2. APIXABAN [Concomitant]
     Active Substance: APIXABAN
     Indication: CARDIAC FAILURE CHRONIC
  3. APIXABAN [Concomitant]
     Active Substance: APIXABAN
     Indication: ATRIAL FIBRILLATION
     Dosage: UNK
     Route: 048
  4. RIVAROXABAN [Concomitant]
     Active Substance: RIVAROXABAN
     Indication: CARDIAC FAILURE CHRONIC
  5. CILOSTAZOL. [Suspect]
     Active Substance: CILOSTAZOL
     Indication: ATRIAL FIBRILLATION
     Dosage: 50 MG, QD(IN THE MORNING)
     Route: 048
     Dates: start: 201605, end: 20170110
  6. CILOSTAZOL. [Suspect]
     Active Substance: CILOSTAZOL
     Indication: CARDIAC FAILURE CHRONIC

REACTIONS (2)
  - Haemorrhagic hepatic cyst [Recovering/Resolving]
  - Off label use [Unknown]

NARRATIVE: CASE EVENT DATE: 20170110
